FAERS Safety Report 6102147-0 (Version None)
Quarter: 2009Q1

REPORT INFORMATION
  Report Type: 
  Country: None (occurrence: None)
  Receive Date: 20090304
  Receipt Date: 20090224
  Transmission Date: 20090719
  Serious: Yes (Death, Hospitalization)
  Sender: FDA-Public Use
  Company Number: SE-MERCK-0902SWE00023

PATIENT
  Age: 84 Year
  Sex: Female

DRUGS (1)
  1. MODURETIC 5-50 [Suspect]
     Route: 065

REACTIONS (2)
  - CRYPTOGENIC CIRRHOSIS [None]
  - LIVER DISORDER [None]
